FAERS Safety Report 8313748-3 (Version None)
Quarter: 2012Q2

REPORT INFORMATION
  Report Type: 
  Country: None (occurrence: None)
  Receive Date: 20120426
  Receipt Date: 20110808
  Transmission Date: 20120825
  Serious: Yes (Other)
  Sender: FDA-Public Use
  Company Number: US-TEVA-US019105

PATIENT
  Sex: Female

DRUGS (1)
  1. PROVIGIL [Suspect]
     Indication: NARCOLEPSY
     Dosage: 400 MILLIGRAM;
     Route: 048
     Dates: start: 20051201

REACTIONS (6)
  - WEIGHT DECREASED [None]
  - PARANOIA [None]
  - FLIGHT OF IDEAS [None]
  - DIZZINESS [None]
  - AGITATION [None]
  - INTERMITTENT EXPLOSIVE DISORDER [None]
